FAERS Safety Report 14474326 (Version 1)
Quarter: 2018Q1

REPORT INFORMATION
  Report Type: Spontaneous
  Country: GB (occurrence: GB)
  Receive Date: 20180201
  Receipt Date: 20180201
  Transmission Date: 20180509
  Serious: Yes (Other)
  Sender: FDA-Public Use
  Company Number: GB-PFIZER INC-2018040107

PATIENT
  Age: 31 Year
  Sex: Female
  Weight: 75 kg

DRUGS (28)
  1. OXYGEN. [Concomitant]
     Active Substance: OXYGEN
     Indication: FOETAL HEART RATE DECREASED
     Dosage: UNK
  2. GELOFUSINE [Concomitant]
     Active Substance: GELATIN\SODIUM CHLORIDE
     Dosage: 250 ML, UNK
  3. EPHEDRINE. [Concomitant]
     Active Substance: EPHEDRINE
     Indication: HYPOTENSION
     Dosage: 6 MG, UNK
  4. METHOXAMINE [Concomitant]
     Active Substance: METHOXAMINE
     Indication: BLOOD PRESSURE SYSTOLIC DECREASED
     Dosage: 2 MG, UNK
  5. PETHIDINE [Concomitant]
     Active Substance: MEPERIDINE
     Indication: DISCOMFORT
     Dosage: 50 MG, UNK
     Route: 030
  6. PROCHLORPERAZINE. [Concomitant]
     Active Substance: PROCHLORPERAZINE
     Indication: DISCOMFORT
     Dosage: 12.5 MG, UNK
     Route: 030
  7. NOREPINEPHRINE BITARTRATE. [Suspect]
     Active Substance: NOREPINEPHRINE BITARTRATE
     Indication: HYPOTENSION
     Dosage: UNK (0:62UG.KG^-1.MIN^-1)
  8. OXYGEN. [Concomitant]
     Active Substance: OXYGEN
     Indication: ANAESTHESIA
     Dosage: 50 %, UNK
  9. OXYGEN. [Concomitant]
     Active Substance: OXYGEN
     Dosage: UNK (RAPID SEQUENCE INDUCTION WITH PRE-OXYGENATION)
  10. SODIUM CITRATE. [Concomitant]
     Active Substance: SODIUM CITRATE
     Dosage: 30 ML, UNK (30ML OF 0.3M)
     Route: 048
  11. MORPHINE [Concomitant]
     Active Substance: MORPHINE
     Indication: ANALGESIC THERAPY
     Dosage: 15 MG, UNK
  12. ADRENALINE /00003901/ [Suspect]
     Active Substance: EPINEPHRINE
     Indication: HYPOTENSION
     Dosage: UNK (0:76UG.KG^-1.MIN^-1)
  13. ISOFLURANE. [Concomitant]
     Active Substance: ISOFLURANE
     Indication: ANAESTHESIA
     Dosage: 1 %, UNK
  14. GELOFUSINE [Concomitant]
     Active Substance: GELATIN\SODIUM CHLORIDE
     Dosage: 250 ML, UNK
  15. THIOPENTONE SODIUM [Concomitant]
     Active Substance: THIOPENTAL SODIUM
     Indication: ANAESTHESIA
     Dosage: 450 MG, UNK
  16. FRUSEMIDE [Concomitant]
     Active Substance: FUROSEMIDE
     Indication: PULMONARY OEDEMA
     Dosage: 40 MG, UNK
     Route: 042
  17. LABETALOL [Concomitant]
     Active Substance: LABETALOL\LABETALOL HYDROCHLORIDE
     Indication: DIASTOLIC HYPERTENSION
     Dosage: 200 MG, UNK
     Route: 048
  18. SYNTOCINON [Concomitant]
     Active Substance: OXYTOCIN
     Indication: POSTOPERATIVE ANALGESIA
     Dosage: 10 IU, UNK
  19. SUXAMETHONIUM [Concomitant]
     Active Substance: SUCCINYLCHOLINE
     Indication: ANAESTHESIA
     Dosage: 100 MG, UNK
  20. GELOFUSINE [Concomitant]
     Active Substance: GELATIN\SODIUM CHLORIDE
     Indication: HYPOTENSION
     Dosage: 200 ML, UNK
  21. FRUSEMIDE [Concomitant]
     Active Substance: FUROSEMIDE
     Indication: HELLP SYNDROME
     Dosage: 40 MG, UNK
  22. DESMOPRESSIN [Concomitant]
     Active Substance: DESMOPRESSIN
     Indication: HELLP SYNDROME
     Dosage: 20 UG, UNK
  23. GLYCERYL TRINITRATE [Concomitant]
     Active Substance: NITROGLYCERIN
     Indication: PULMONARY OEDEMA
     Dosage: 400 UG, UNK
     Route: 060
  24. NORMAL SALINE [Concomitant]
     Active Substance: SODIUM CHLORIDE
     Indication: COAGULOPATHY
     Dosage: UNK (80 ML/H)
  25. NITROUS OXIDE W/OXYGEN [Concomitant]
     Active Substance: NITROUS OXIDE\OXYGEN
     Indication: ANAESTHESIA
     Dosage: UNK, (OXYGEN 50% AND NITROUS OXIDE 50% MIXTURE)
  26. MORPHINE [Concomitant]
     Active Substance: MORPHINE
     Indication: POSTOPERATIVE ANALGESIA
     Dosage: 1 MG/ML, UNK
  27. ALFENTANIL. [Concomitant]
     Active Substance: ALFENTANIL
     Indication: ANAESTHESIA
     Dosage: 750 UG, UNK
  28. N-ACETYLCYSTEINE [Concomitant]
     Active Substance: ACETYLCYSTEINE
     Indication: HELLP SYNDROME
     Dosage: 5 G, UNK

REACTIONS (1)
  - Ventricular tachycardia [Recovered/Resolved]
